FAERS Safety Report 10902632 (Version 3)
Quarter: 2015Q1

REPORT INFORMATION
  Report Type: Report from Study
  Country: AU (occurrence: AU)
  Receive Date: 20150310
  Receipt Date: 20150319
  Transmission Date: 20150721
  Serious: Yes (Hospitalization)
  Sender: FDA-Public Use
  Company Number: AU-AMGEN-AUSCT2015021023

PATIENT
  Age: 54 Year
  Sex: Female
  Weight: 57.1 kg

DRUGS (8)
  1. MAGMIN                             /01486820/ [Concomitant]
     Indication: BLOOD MAGNESIUM DECREASED
     Dosage: 500 MG, BID
     Route: 048
     Dates: start: 20141028
  2. OMEPRAZOLE. [Concomitant]
     Active Substance: OMEPRAZOLE
     Indication: GASTROOESOPHAGEAL REFLUX PROPHYLAXIS
     Dosage: 20 MG, QD
     Route: 048
     Dates: start: 20140722
  3. VALACYCLOVIR [Concomitant]
     Active Substance: VALACYCLOVIR HYDROCHLORIDE
     Indication: ANTIVIRAL PROPHYLAXIS
     Dosage: 500 MG, QD
     Route: 048
     Dates: start: 20140722
  4. VITAMIN D                          /00107901/ [Concomitant]
     Active Substance: ERGOCALCIFEROL
     Indication: VITAMIN SUPPLEMENTATION
     Dosage: 1000 IU, QD
     Route: 048
     Dates: start: 2013
  5. CARFILZOMIB [Suspect]
     Active Substance: CARFILZOMIB
     Indication: PLASMA CELL MYELOMA
     Dosage: 56 MG/M2, PER CHEMO REGIM
     Route: 042
     Dates: start: 20140722
  6. DEXAMETHASONE. [Concomitant]
     Active Substance: DEXAMETHASONE
     Indication: PLASMA CELL MYELOMA
     Dosage: 8 MG, UNK
     Route: 065
     Dates: start: 20140722
  7. METOCLOPRAMIDE. [Concomitant]
     Active Substance: METOCLOPRAMIDE
     Indication: NAUSEA
     Dosage: 10 MG, AS NECESSARY
     Route: 048
     Dates: start: 20140830
  8. ACETAMINOPHEN. [Concomitant]
     Active Substance: ACETAMINOPHEN
     Indication: PAIN
     Dosage: 1 G, AS NECESSARY
     Route: 048
     Dates: start: 20140816

REACTIONS (1)
  - Cholecystitis [Recovered/Resolved]

NARRATIVE: CASE EVENT DATE: 20150120
